FAERS Safety Report 7087827-5 (Version None)
Quarter: 2010Q4

REPORT INFORMATION
  Report Type: 
  Country: None (occurrence: None)
  Receive Date: 20101108
  Receipt Date: 20101027
  Transmission Date: 20110411
  Serious: Yes (Other)
  Sender: FDA-Public Use
  Company Number: US-JNJFOC-20100704629

PATIENT
  Sex: Female

DRUGS (2)
  1. LEVAQUIN [Suspect]
     Indication: ASTHMA
     Route: 048
  2. PREDNISONE [Suspect]
     Indication: ASTHMA
     Route: 065

REACTIONS (6)
  - BURSITIS [None]
  - CUBITAL TUNNEL SYNDROME [None]
  - EPICONDYLITIS [None]
  - PARAESTHESIA [None]
  - ROTATOR CUFF SYNDROME [None]
  - TENDONITIS [None]
